FAERS Safety Report 18684959 (Version 1)
Quarter: 2020Q4

REPORT INFORMATION
  Report Type: Spontaneous
  Country: TZ (occurrence: TZ)
  Receive Date: 20201230
  Receipt Date: 20201230
  Transmission Date: 20210114
  Serious: Yes (Death, Other)
  Sender: FDA-Public Use
  Company Number: NVSC2020TZ328624

PATIENT
  Age: 58 Year
  Sex: Male

DRUGS (1)
  1. GLIVEC [Suspect]
     Active Substance: IMATINIB MESYLATE
     Indication: CHRONIC MYELOID LEUKAEMIA
     Dosage: 400 MG, QD (4X100MG TABLETS)
     Route: 048
     Dates: start: 20200518, end: 20201019

REACTIONS (8)
  - Drug intolerance [Unknown]
  - Blast crisis in myelogenous leukaemia [Unknown]
  - Infective myositis [Unknown]
  - Abscess limb [Unknown]
  - Splenomegaly [Unknown]
  - Drug resistance [Unknown]
  - Chronic myeloid leukaemia [Unknown]
  - Sepsis [Fatal]

NARRATIVE: CASE EVENT DATE: 20201021
